FAERS Safety Report 22006375 (Version 2)
Quarter: 2023Q2

REPORT INFORMATION
  Report Type: Spontaneous
  Country: ES (occurrence: ES)
  Receive Date: 20230217
  Receipt Date: 20230613
  Transmission Date: 20230722
  Serious: Yes (Death, Life-Threatening, Hospitalization)
  Sender: FDA-Public Use
  Company Number: ES-Accord-298394

PATIENT
  Age: 60 Year
  Sex: Male
  Weight: 49.3 kg

DRUGS (2)
  1. PACLITAXEL [Suspect]
     Active Substance: PACLITAXEL
     Indication: Product used for unknown indication
     Dosage: 80 MG/SQ. METER, DAY 1, 8, 15 OF EACH 28-DAY CYCLE
     Route: 065
     Dates: start: 20221223, end: 20221230
  2. CARBOPLATIN [Suspect]
     Active Substance: CARBOPLATIN
     Indication: Product used for unknown indication
     Dosage: Q28D, UNK, AUC 5 Q4W
     Route: 065
     Dates: start: 20221223, end: 20221223

REACTIONS (1)
  - Pancytopenia [Fatal]

NARRATIVE: CASE EVENT DATE: 20230105
